FAERS Safety Report 14637308 (Version 1)
Quarter: 2018Q1

REPORT INFORMATION
  Report Type: Spontaneous
  Country: US (occurrence: US)
  Receive Date: 20180314
  Receipt Date: 20180314
  Transmission Date: 20180509
  Serious: No
  Sender: FDA-Public Use
  Company Number: US-ALLERGAN-1729266US

PATIENT
  Sex: Female
  Weight: 72.56 kg

DRUGS (1)
  1. HYDROCODONE BITARTRATE;ACETAMINOPHEN UNK [Suspect]
     Active Substance: ACETAMINOPHEN\HYDROCODONE BITARTRATE
     Indication: PAIN
     Dosage: 10-325 MG, 5 TIMES A DAY
     Route: 048
     Dates: start: 2000

REACTIONS (3)
  - Diarrhoea [Unknown]
  - Hepatic enzyme increased [Unknown]
  - Irritable bowel syndrome [Unknown]
